FAERS Safety Report 20545358 (Version 1)
Quarter: 2022Q1

REPORT INFORMATION
  Report Type: Spontaneous
  Country: US (occurrence: None)
  Receive Date: 20220302
  Receipt Date: 20220302
  Transmission Date: 20220423
  Serious: No
  Sender: FDA-Public Use
  Company Number: None

PATIENT
  Age: 41 Year
  Sex: Female
  Weight: 63.5 kg

DRUGS (1)
  1. BUPRENORPHINE\NALOXONE [Suspect]
     Active Substance: BUPRENORPHINE\NALOXONE
     Dosage: OTHER FREQUENCY : 1-2 X DAILY;?QUANTITY: 1-2 TABS DAILY, 8MG-2MG

REACTIONS (3)
  - Migraine [None]
  - Stomatitis [None]
  - Nausea [None]
